FAERS Safety Report 8044232-2 (Version None)
Quarter: 2011Q4

REPORT INFORMATION
  Report Type: 
  Country: None (occurrence: None)
  Receive Date: 20111202
  Receipt Date: 20101004
  Transmission Date: 20120403
  Serious: Yes (Other)
  Sender: FDA-Public Use
  Company Number: WAES 1003USA01840

PATIENT
  Age: 68 Year
  Sex: Female
  Weight: 56.6996 kg

DRUGS (4)
  1. BONIVA [Suspect]
     Indication: PRODUCT USED FOR UNKNOWN INDICATION
     Dosage: 150 MG/MTH
     Dates: start: 20080215, end: 20090511
  2. FOSAMAX [Suspect]
     Indication: OSTEOPENIA
     Dosage: 70 MG/PO
     Route: 048
     Dates: start: 20030401, end: 20071011
  3. FOSAMAX [Suspect]
     Indication: OSTEOPOROSIS
     Dosage: 70 MG/PO
     Route: 048
     Dates: start: 20030401, end: 20071011
  4. FOSAMAX PLUS D [Suspect]
     Indication: PRODUCT USED FOR UNKNOWN INDICATION
     Dosage: PO
     Route: 048

REACTIONS (36)
  - INFECTION [None]
  - SWELLING [None]
  - NASAL INFLAMMATION [None]
  - DRUG ERUPTION [None]
  - ASTHMA [None]
  - FALL [None]
  - OSTEONECROSIS OF JAW [None]
  - FOOT FRACTURE [None]
  - FUNGAL INFECTION [None]
  - FOOT DEFORMITY [None]
  - BACTERIAL INFECTION [None]
  - DENTAL CARIES [None]
  - TOOTH INFECTION [None]
  - TINNITUS [None]
  - RHEUMATOID ARTHRITIS [None]
  - MUCOSAL INFLAMMATION [None]
  - INFLAMMATION [None]
  - RESPIRATORY DISORDER [None]
  - HAEMATOMA [None]
  - TOOTHACHE [None]
  - TOOTH DISORDER [None]
  - SINUSITIS [None]
  - HYPERSENSITIVITY [None]
  - COUGH [None]
  - ABDOMINAL PAIN [None]
  - CATARACT [None]
  - UPPER RESPIRATORY TRACT INFECTION [None]
  - GINGIVITIS [None]
  - MUSCLE TWITCHING [None]
  - CHANGE OF BOWEL HABIT [None]
  - BLOOD CHOLESTEROL INCREASED [None]
  - HAEMORRHOIDS [None]
  - NASAL CAVITY MASS [None]
  - ADVERSE DRUG REACTION [None]
  - PALPITATIONS [None]
  - PAIN [None]
